FAERS Safety Report 25320121 (Version 1)
Quarter: 2025Q2

REPORT INFORMATION
  Report Type: Spontaneous
  Country: KR (occurrence: KR)
  Receive Date: 20250515
  Receipt Date: 20250515
  Transmission Date: 20250717
  Serious: Yes (Other)
  Sender: PFIZER
  Company Number: KR-PFIZER INC-202500100010

PATIENT
  Age: 42 Year
  Sex: Female
  Weight: 67.4 kg

DRUGS (1)
  1. VFEND [Suspect]
     Active Substance: VORICONAZOLE
     Indication: Precursor B-lymphoblastic lymphoma
     Dosage: 200 MG, 2X/DAY
     Dates: start: 20230806, end: 20230821

REACTIONS (2)
  - Xerophthalmia [Recovered/Resolved]
  - Vision blurred [Recovered/Resolved]

NARRATIVE: CASE EVENT DATE: 20230816
